FAERS Safety Report 8600836 (Version 3)
Quarter: 2013Q4

REPORT INFORMATION
  Report Type: Spontaneous
  Country: US (occurrence: US)
  Receive Date: 20120524
  Receipt Date: 20131101
  Transmission Date: 20140711
  Serious: Yes (Life-Threatening, Hospitalization)
  Sender: FDA-Public Use
  Company Number: US-009507513-2012SP025892

PATIENT
  Sex: Female

DRUGS (12)
  1. VICTRELIS [Suspect]
     Indication: CHRONIC HEPATITIS C
     Dosage: 800 MG, TID
     Dates: start: 20120319
  2. PEGASYS [Suspect]
     Indication: CHRONIC HEPATITIS C
     Dosage: 180 MICROGRAM, QW
     Dates: start: 20120319
  3. RIBASPHERE [Suspect]
     Indication: CHRONIC HEPATITIS C
     Dosage: 100 MG DAILY DIVIDED BID
     Dates: start: 20120319
  4. CYMBALTA [Concomitant]
     Indication: DEPRESSION
     Dosage: 40 MG, DAILY
  5. LANSOPRAZOLE [Concomitant]
     Indication: PRODUCT USED FOR UNKNOWN INDICATION
  6. POTASSIUM (UNSPECIFIED) [Concomitant]
     Indication: PRODUCT USED FOR UNKNOWN INDICATION
  7. GABAPENTIN [Concomitant]
     Indication: PAIN
     Dosage: 300 MG, QID
  8. ATENOLOL [Concomitant]
     Indication: PRODUCT USED FOR UNKNOWN INDICATION
  9. CHLORTHALIDONE [Concomitant]
     Indication: PRODUCT USED FOR UNKNOWN INDICATION
  10. VITAMINS (UNSPECIFIED) [Concomitant]
     Indication: VITAMIN SUPPLEMENTATION
     Dosage: DAILY
  11. CALCIUM (UNSPECIFIED) (+) VITAMINS (UNSPECIFIED) [Concomitant]
     Indication: MINERAL SUPPLEMENTATION
     Dosage: UNK, BID
     Route: 048
  12. ASPIRIN [Concomitant]
     Indication: CARDIOVASCULAR EVENT PROPHYLAXIS
     Dosage: 80 MG, DAILY
     Route: 048

REACTIONS (3)
  - Pneumonia [Recovering/Resolving]
  - Bronchitis [Recovering/Resolving]
  - Blood potassium abnormal [Recovering/Resolving]
